FAERS Safety Report 19484477 (Version 1)
Quarter: 2021Q3

REPORT INFORMATION
  Report Type: Report from Study
  Country: US (occurrence: US)
  Receive Date: 20210701
  Receipt Date: 20210701
  Transmission Date: 20211014
  Serious: Yes (Other)
  Sender: FDA-Public Use
  Company Number: US-JAZZ-2019-US-013553

PATIENT
  Sex: Female

DRUGS (88)
  1. CEFALEXIN [Concomitant]
     Active Substance: CEPHALEXIN
  2. BACTRIM [Concomitant]
     Active Substance: SULFAMETHOXAZOLE\TRIMETHOPRIM
  3. AMOXICILLIN. [Concomitant]
     Active Substance: AMOXICILLIN
  4. NEULASTA [Concomitant]
     Active Substance: PEGFILGRASTIM
  5. ALLOPURINOL. [Concomitant]
     Active Substance: ALLOPURINOL
  6. SUMATRIPTAN. [Concomitant]
     Active Substance: SUMATRIPTAN
  7. VITAMIN B12 [Concomitant]
     Active Substance: CYANOCOBALAMIN
  8. OPTIVE [Concomitant]
     Active Substance: CARBOXYMETHYLCELLULOSE SODIUM\GLYCERIN
  9. CALCIUM ANTACID [Concomitant]
     Active Substance: CALCIUM CARBONATE
  10. LOVAZA [Concomitant]
     Active Substance: OMEGA-3-ACID ETHYL ESTERS
  11. NORTRIPTYLINE [Concomitant]
     Active Substance: NORTRIPTYLINE
  12. PARACETAMOL [Concomitant]
     Active Substance: ACETAMINOPHEN
  13. CETIRIZINE HCL [Concomitant]
     Active Substance: CETIRIZINE HYDROCHLORIDE
  14. FERROUS SULFATE. [Concomitant]
     Active Substance: FERROUS SULFATE
  15. HYPROMELLOSE [Concomitant]
     Active Substance: HYPROMELLOSES
  16. MELOXICAM. [Concomitant]
     Active Substance: MELOXICAM
  17. XYREM [Suspect]
     Active Substance: SODIUM OXYBATE
     Dosage: 2.25 G, BID
     Route: 048
     Dates: start: 201901
  18. SULFAMETHOXAZOLE [Concomitant]
     Active Substance: SULFAMETHOXAZOLE
  19. AMILORIDE HCL [Concomitant]
     Active Substance: AMILORIDE HYDROCHLORIDE
  20. POTASSIUM CHLORIDE. [Concomitant]
     Active Substance: POTASSIUM CHLORIDE
  21. ALLEGRA D?12 HOUR [Concomitant]
     Active Substance: FEXOFENADINE HYDROCHLORIDE\PSEUDOEPHEDRINE HYDROCHLORIDE
  22. ERGOCALCIFEROL. [Concomitant]
     Active Substance: ERGOCALCIFEROL
  23. LIDOCAINE HCL [Concomitant]
     Active Substance: LIDOCAINE HYDROCHLORIDE
  24. OLANZAPINE. [Concomitant]
     Active Substance: OLANZAPINE
  25. METHOCARBAMOL. [Concomitant]
     Active Substance: METHOCARBAMOL
  26. DICLOFENAC [Concomitant]
     Active Substance: DICLOFENAC
  27. PSEUDOEPHEDRINE HYDROCHLORIDE. [Concomitant]
     Active Substance: PSEUDOEPHEDRINE HYDROCHLORIDE
  28. DIPHENHYDRAMINE HYDROCHLORIDE. [Concomitant]
     Active Substance: DIPHENHYDRAMINE HYDROCHLORIDE
  29. ASPIRIN 81 [Concomitant]
     Active Substance: ASPIRIN
  30. TOBRAMYCIN. [Concomitant]
     Active Substance: TOBRAMYCIN
  31. NABUMETONE. [Concomitant]
     Active Substance: NABUMETONE
  32. MISOPROSTOL. [Concomitant]
     Active Substance: MISOPROSTOL
  33. AMPHETAMINE [Concomitant]
     Active Substance: AMPHETAMINE
  34. RESTASIS [Concomitant]
     Active Substance: CYCLOSPORINE
  35. ZYPREXA [Concomitant]
     Active Substance: OLANZAPINE
  36. ADVIL COLD [Concomitant]
  37. RITUXAN HYCELA [Concomitant]
     Active Substance: HYALURONIDASE (HUMAN RECOMBINANT)\RITUXIMAB
  38. XYZAL [Concomitant]
     Active Substance: LEVOCETIRIZINE DIHYDROCHLORIDE
  39. CYCLOPHOSPHAMIDE. [Concomitant]
     Active Substance: CYCLOPHOSPHAMIDE
  40. ONDANSETRON HCL [Concomitant]
     Active Substance: ONDANSETRON HYDROCHLORIDE
  41. BACITRACIN. [Concomitant]
     Active Substance: BACITRACIN
  42. FLONASE ALLERGY RELIEF [Concomitant]
     Active Substance: FLUTICASONE PROPIONATE
  43. ZONEGRAN [Concomitant]
     Active Substance: ZONISAMIDE
  44. NORTRIPTYLINE HCL [Concomitant]
     Active Substance: NORTRIPTYLINE HYDROCHLORIDE
  45. KETOROLAC [Concomitant]
     Active Substance: KETOROLAC TROMETHAMINE
  46. IBUPROFEN. [Concomitant]
     Active Substance: IBUPROFEN
  47. CYANOCOBALAMIN. [Concomitant]
     Active Substance: CYANOCOBALAMIN
  48. ACULAR [Concomitant]
     Active Substance: KETOROLAC TROMETHAMINE
  49. XYREM [Suspect]
     Active Substance: SODIUM OXYBATE
     Indication: NARCOLEPSY
     Dosage: 4.5 G, BID
     Route: 048
     Dates: start: 200305, end: 200306
  50. PREDNISONE. [Concomitant]
     Active Substance: PREDNISONE
  51. MAGNESIUM OXIDE. [Concomitant]
     Active Substance: MAGNESIUM OXIDE
  52. DOXYCYCLINE HYCLATE. [Concomitant]
     Active Substance: DOXYCYCLINE HYCLATE
  53. RITUXAN [Concomitant]
     Active Substance: RITUXIMAB
  54. ADDERALL [Concomitant]
     Active Substance: AMPHETAMINE ASPARTATE\AMPHETAMINE SULFATE\DEXTROAMPHETAMINE SACCHARATE\DEXTROAMPHETAMINE SULFATE
  55. MONTELUKAST SODIUM. [Concomitant]
     Active Substance: MONTELUKAST SODIUM
  56. TORSEMIDE. [Concomitant]
     Active Substance: TORSEMIDE
  57. TRAMADOL HCL [Concomitant]
     Active Substance: TRAMADOL HYDROCHLORIDE
  58. PROPRANOLOL [Concomitant]
     Active Substance: PROPRANOLOL HYDROCHLORIDE
  59. DOXYCYCLINE MONOHYDRATE [Concomitant]
     Active Substance: DOXYCYCLINE
  60. SYSTANE BALANCE [Concomitant]
     Active Substance: PROPYLENE GLYCOL
  61. XYREM [Suspect]
     Active Substance: SODIUM OXYBATE
     Indication: CATAPLEXY
     Dosage: DOSE ADJUSTMENT
     Route: 048
     Dates: start: 200306, end: 201901
  62. INDERAL [Concomitant]
     Active Substance: PROPRANOLOL HYDROCHLORIDE
  63. TOBREX [Concomitant]
     Active Substance: TOBRAMYCIN
  64. NEILMED SINUS RINSE [Concomitant]
     Active Substance: SODIUM BICARBONATE\SODIUM CHLORIDE
  65. LEVOFLOXACIN. [Concomitant]
     Active Substance: LEVOFLOXACIN
  66. DOXORUBICIN [Concomitant]
     Active Substance: DOXORUBICIN
  67. METFORMIN HCL [Concomitant]
     Active Substance: METFORMIN HYDROCHLORIDE
  68. OLANZAPINE ODT [Concomitant]
     Active Substance: OLANZAPINE
  69. RITALIN [Concomitant]
     Active Substance: METHYLPHENIDATE HYDROCHLORIDE
  70. METOLAZONE. [Concomitant]
     Active Substance: METOLAZONE
  71. CALCIUM [Concomitant]
     Active Substance: CALCIUM
  72. ADVAIR HFA [Concomitant]
     Active Substance: FLUTICASONE PROPIONATE\SALMETEROL XINAFOATE
  73. VITAMIN D2 [Concomitant]
     Active Substance: ERGOCALCIFEROL
  74. CLINDAMYCIN HCL [Concomitant]
     Active Substance: CLINDAMYCIN HYDROCHLORIDE
  75. CRESTOR [Concomitant]
     Active Substance: ROSUVASTATIN CALCIUM
  76. OXYCODONE HYDROCHLORIDE. [Concomitant]
     Active Substance: OXYCODONE HYDROCHLORIDE
  77. PROPYLENE GLYCOL [Concomitant]
     Active Substance: PROPYLENE GLYCOL
  78. BOTOX [Concomitant]
     Active Substance: ONABOTULINUMTOXINA
  79. SYNTHROID [Concomitant]
     Active Substance: LEVOTHYROXINE SODIUM
  80. KLOR?CON [Concomitant]
     Active Substance: POTASSIUM CHLORIDE
  81. CEFUROXIME AXETIL. [Concomitant]
     Active Substance: CEFUROXIME AXETIL
  82. PROCHLORPERAZINE. [Concomitant]
     Active Substance: PROCHLORPERAZINE
  83. VINCRISTINE [Concomitant]
     Active Substance: VINCRISTINE
  84. ERYTHROMYCIN. [Concomitant]
     Active Substance: ERYTHROMYCIN
  85. GENTEAL MODERATE TO SEVERE GEL DROPS [Concomitant]
     Active Substance: CARBOXYMETHYLCELLULOSE SODIUM\HYPROMELLOSES
  86. LEVOTHYROXINE. [Concomitant]
     Active Substance: LEVOTHYROXINE
  87. REFRESH PLUS [Concomitant]
     Active Substance: CARBOXYMETHYLCELLULOSE SODIUM
  88. MODAFINIL. [Concomitant]
     Active Substance: MODAFINIL

REACTIONS (2)
  - Cystitis [Recovering/Resolving]
  - Urinary retention [Recovering/Resolving]
